FAERS Safety Report 6305683-7 (Version None)
Quarter: 2009Q3

REPORT INFORMATION
  Report Type: 
  Country: None (occurrence: None)
  Receive Date: 20090807
  Receipt Date: 20090720
  Transmission Date: 20100115
  Serious: Yes (Death, Hospitalization)
  Sender: FDA-Public Use
  Company Number: ADE# 09-362DPR

PATIENT
  Age: 80 Year
  Sex: Female

DRUGS (3)
  1. DIGOXIN [Suspect]
     Indication: HEART RATE IRREGULAR
     Dosage: ONE TABLET DAILY
  2. CARDIZEM [Concomitant]
  3. ANOTHER DRUG FOR THE HEART [Concomitant]

REACTIONS (2)
  - ABNORMAL BEHAVIOUR [None]
  - EATING DISORDER [None]
